FAERS Safety Report 19488675 (Version 8)
Quarter: 2023Q2

REPORT INFORMATION
  Report Type: Report from Study
  Country: US (occurrence: US)
  Receive Date: 20210702
  Receipt Date: 20230411
  Transmission Date: 20230721
  Serious: No
  Sender: FDA-Public Use
  Company Number: NVSC2021US138165

PATIENT
  Sex: Female

DRUGS (2)
  1. COSENTYX [Suspect]
     Active Substance: SECUKINUMAB
     Indication: Psoriasis
     Dosage: 150 MG, QW
     Route: 058
  2. COSENTYX [Suspect]
     Active Substance: SECUKINUMAB
     Dosage: 300 MG, QW (WEEKLY FOR 5 WEEKS)
     Route: 058

REACTIONS (11)
  - Pain [Unknown]
  - Influenza like illness [Recovered/Resolved]
  - Oropharyngeal pain [Recovered/Resolved]
  - Dysphonia [Recovered/Resolved]
  - Lip swelling [Unknown]
  - Rash [Unknown]
  - Condition aggravated [Unknown]
  - Oropharyngeal pain [Unknown]
  - Thermal burn [Unknown]
  - Weight decreased [Unknown]
  - Joint swelling [Unknown]
